FAERS Safety Report 4544447-1 (Version None)
Quarter: 2004Q4

REPORT INFORMATION
  Report Type: 
  Country: None (occurrence: None)
  Receive Date: 20041230
  Receipt Date: 20041222
  Transmission Date: 20050328
  Serious: Yes (Hospitalization)
  Sender: FDA-Public Use
  Company Number: B0359098A

PATIENT
  Age: 32 Year
  Sex: Male

DRUGS (1)
  1. LAMICTAL [Suspect]
     Indication: DEPRESSION

REACTIONS (13)
  - ENANTHEMA [None]
  - EOSINOPHILIA [None]
  - GRANULOMA [None]
  - HAEMODIALYSIS [None]
  - HEPATITIS [None]
  - HEPATOSPLENOMEGALY [None]
  - HYPERTENSION [None]
  - JAUNDICE [None]
  - LYMPHADENOPATHY [None]
  - NEPHRITIS INTERSTITIAL [None]
  - OEDEMA [None]
  - PYREXIA [None]
  - VASCULITIS [None]
